FAERS Safety Report 8597747-2 (Version None)
Quarter: 2012Q3

REPORT INFORMATION
  Report Type: 
  Country: None (occurrence: None)
  Receive Date: 20120803
  Receipt Date: 20120726
  Transmission Date: 20120928
  Serious: Yes (Hospitalization, Other)
  Sender: FDA-Public Use
  Company Number: ADR-2012-01074

PATIENT
  Sex: Female

DRUGS (2)
  1. LIORESAL [Suspect]
     Indication: MUSCLE SPASTICITY
     Dosage: 175 MCG/DAY
  2. LIORESAL [Suspect]
     Indication: MULTIPLE SCLEROSIS
     Dosage: 175 MCG/DAY

REACTIONS (6)
  - WITHDRAWAL SYNDROME [None]
  - UNDERDOSE [None]
  - TACHYCARDIA [None]
  - HALLUCINATION [None]
  - VIBRATORY SENSE INCREASED [None]
  - WHITE BLOOD CELL COUNT INCREASED [None]
